FAERS Safety Report 9769447 (Version 1)
Quarter: 2013Q4

REPORT INFORMATION
  Report Type: Spontaneous
  Country: US (occurrence: None)
  Receive Date: 20131217
  Receipt Date: 20131217
  Transmission Date: 20140711
  Serious: Yes (Other)
  Sender: FDA-Public Use
  Company Number: None

PATIENT
  Age: 73 Year
  Sex: Male
  Weight: 53.98 kg

DRUGS (7)
  1. THEOPHYLLINE [Suspect]
     Indication: RESPIRATORY DISORDER
     Dosage: BY MOUTH
     Route: 048
     Dates: start: 20131110
  2. BUDESONIDE [Concomitant]
  3. LEVALGUTEROL [Concomitant]
  4. FORMOTEROL [Concomitant]
  5. TIOTROPIUIM [Concomitant]
  6. CLONAZEPAM [Concomitant]
  7. DOXEPIN [Concomitant]

REACTIONS (1)
  - Constipation [None]
